FAERS Safety Report 21303321 (Version 1)
Quarter: 2022Q3

REPORT INFORMATION
  Report Type: Spontaneous
  Country: US (occurrence: None)
  Receive Date: 20220907
  Receipt Date: 20220907
  Transmission Date: 20221026
  Serious: Yes (Other)
  Sender: FDA-Public Use
  Company Number: None

PATIENT
  Age: 63 Year
  Sex: Male
  Weight: 94.05 kg

DRUGS (7)
  1. NEBIVOLOL [Suspect]
     Active Substance: NEBIVOLOL
     Indication: Cardiac septal hypertrophy
     Dosage: FREQUENCY : DAILY;?
     Route: 048
     Dates: start: 20220221, end: 20220617
  2. METOPROLOL TARTRATE [Concomitant]
     Active Substance: METOPROLOL TARTRATE
     Dates: start: 20200310, end: 20200720
  3. METOPROLOL SUCCINATE [Concomitant]
     Active Substance: METOPROLOL SUCCINATE
     Dates: start: 20200720, end: 20200820
  4. CARVEDILOL [Concomitant]
     Active Substance: CARVEDILOL
     Dates: start: 20200820, end: 20200828
  5. BYSTOLIC [Concomitant]
     Active Substance: NEBIVOLOL HYDROCHLORIDE
     Dates: start: 20200828, end: 20220221
  6. LABETALOL [Concomitant]
     Active Substance: LABETALOL\LABETALOL HYDROCHLORIDE
     Dates: start: 20220617, end: 20220707
  7. ATENOLOL [Concomitant]
     Active Substance: ATENOLOL

REACTIONS (3)
  - Blood pressure increased [None]
  - Chest pain [None]
  - Condition aggravated [None]

NARRATIVE: CASE EVENT DATE: 20220617
